FAERS Safety Report 10482772 (Version 2)
Quarter: 2014Q3

REPORT INFORMATION
  Report Type: Spontaneous
  Country: IT (occurrence: IT)
  Receive Date: 20140929
  Receipt Date: 20140929
  Transmission Date: 20150326
  Serious: Yes (Hospitalization)
  Sender: FDA-Public Use
  Company Number: IT-ASTRAZENECA-2014SE65997

PATIENT
  Age: 31645 Day
  Sex: Female

DRUGS (7)
  1. NITRO-DUR [Suspect]
     Active Substance: NITROGLYCERIN
     Route: 062
     Dates: start: 20140508, end: 20140509
  2. TENORETIC [Suspect]
     Active Substance: ATENOLOL\CHLORTHALIDONE
     Dosage: 50+12.5 MG
     Route: 048
     Dates: start: 20140508, end: 20140509
  3. CITALOPRAM [Suspect]
     Active Substance: CITALOPRAM HYDROBROMIDE
     Route: 065
  4. NITRO-DUR [Suspect]
     Active Substance: NITROGLYCERIN
     Route: 062
  5. CITALOPRAM [Suspect]
     Active Substance: CITALOPRAM HYDROBROMIDE
     Route: 065
     Dates: start: 20140508, end: 20140509
  6. COUMADIN [Suspect]
     Active Substance: WARFARIN SODIUM
     Dosage: 1/2 TABLET ALTERNATE TO 1/4TABLET
     Route: 065
     Dates: start: 20140508, end: 20140509
  7. COUMADIN [Suspect]
     Active Substance: WARFARIN SODIUM
     Route: 065

REACTIONS (3)
  - Atrial fibrillation [Unknown]
  - Vomiting [Recovering/Resolving]
  - Bradycardia [Unknown]

NARRATIVE: CASE EVENT DATE: 20140508
